FAERS Safety Report 24082619 (Version 1)
Quarter: 2024Q3

REPORT INFORMATION
  Report Type: Report from Study
  Country: CN (occurrence: CN)
  Receive Date: 20240712
  Receipt Date: 20240712
  Transmission Date: 20241017
  Serious: Yes (Other)
  Sender: Granulation Technology, INC
  Company Number: CN-GTI-000254

PATIENT
  Age: 1 Year

DRUGS (2)
  1. RITUXIMAB [Concomitant]
     Active Substance: RITUXIMAB
     Indication: Factor VIII deficiency
     Route: 065
  2. PREDNISONE [Suspect]
     Active Substance: PREDNISONE
     Indication: Factor VIII deficiency
     Route: 065

REACTIONS (4)
  - Infection [Unknown]
  - Cough [Unknown]
  - Pyrexia [Unknown]
  - Diarrhoea [Unknown]
